FAERS Safety Report 9552265 (Version 1)
Quarter: 2013Q2

REPORT INFORMATION
  Report Type: Spontaneous
  Country: US (occurrence: None)
  Receive Date: 20130507
  Receipt Date: 20130507
  Transmission Date: 20140414
  Serious: Yes (Other)
  Sender: FDA-Public Use
  Company Number: PHEH2012US017149

PATIENT
  Age: 59 Year
  Sex: Male

DRUGS (1)
  1. TASIGNA (AMN107) CAPSULE [Suspect]
     Indication: ACUTE MYELOID LEUKAEMIA

REACTIONS (6)
  - Bone marrow failure [None]
  - Blast crisis in myelogenous leukaemia [None]
  - Drug ineffective [None]
  - Sluggishness [None]
  - Malignant neoplasm progression [None]
  - Blast cell count increased [None]
